FAERS Safety Report 21583555 (Version 4)
Quarter: 2023Q1

REPORT INFORMATION
  Report Type: Report from Study
  Country: RO (occurrence: RO)
  Receive Date: 20221111
  Receipt Date: 20230306
  Transmission Date: 20230417
  Serious: Yes (Other)
  Sender: FDA-Public Use
  Company Number: RO-JNJFOC-20221119616

PATIENT
  Age: 60 Year

DRUGS (1)
  1. TECLISTAMAB [Suspect]
     Active Substance: TECLISTAMAB
     Indication: Plasma cell myeloma
     Route: 065
     Dates: end: 20221106

REACTIONS (4)
  - Polyneuropathy [Unknown]
  - Intestinal sepsis [Unknown]
  - Pneumonia [Unknown]
  - Bedridden [Unknown]
